FAERS Safety Report 8823824 (Version 2)
Quarter: 2012Q4

REPORT INFORMATION
  Report Type: 
  Country: US (occurrence: US)
  Receive Date: 20121003
  Receipt Date: 20121016
  Transmission Date: 20130627
  Serious: Yes (Other)
  Sender: FDA-Public Use
  Company Number: US-PFIZER INC-2012242856

PATIENT
  Age: 52 Year
  Sex: Male
  Weight: 83.45 kg

DRUGS (2)
  1. DILANTIN [Suspect]
     Indication: EPILEPSY
     Dosage: 200 mg, daily
     Route: 048
     Dates: start: 20120829, end: 2012
  2. DILANTIN [Suspect]
     Indication: EPILEPSY
     Dosage: 100 mg, UNK
     Route: 048
     Dates: start: 1974, end: 2012

REACTIONS (19)
  - Drug dispensing error [Unknown]
  - Wrong drug administered [Unknown]
  - Blood pressure abnormal [Not Recovered/Not Resolved]
  - Blood cholesterol abnormal [Not Recovered/Not Resolved]
  - Chronic obstructive pulmonary disease [Not Recovered/Not Resolved]
  - Activities of daily living impaired [Recovering/Resolving]
  - Balance disorder [Recovering/Resolving]
  - Abdominal discomfort [Unknown]
  - Constipation [Not Recovered/Not Resolved]
  - Cough [Not Recovered/Not Resolved]
  - Decreased appetite [Unknown]
  - Malaise [Recovering/Resolving]
  - Nausea [Not Recovered/Not Resolved]
  - Oropharyngeal pain [Not Recovered/Not Resolved]
  - Dizziness [Recovering/Resolving]
  - Confusional state [Recovering/Resolving]
  - Thinking abnormal [Recovering/Resolving]
  - Feeling abnormal [Recovering/Resolving]
  - Weight decreased [Unknown]
